FAERS Safety Report 22635370 (Version 1)
Quarter: 2023Q2

REPORT INFORMATION
  Report Type: Spontaneous
  Country: DE (occurrence: DE)
  Receive Date: 20230623
  Receipt Date: 20230623
  Transmission Date: 20230722
  Serious: Yes (Hospitalization, Other)
  Sender: FDA-Public Use
  Company Number: DE-AMGEN-DEUSP2023108230

PATIENT
  Age: 32 Year
  Sex: Male

DRUGS (2)
  1. NPLATE [Suspect]
     Active Substance: ROMIPLOSTIM
     Indication: Immune thrombocytopenia
     Dosage: UNK
     Route: 040
     Dates: start: 20221201, end: 202303
  2. NPLATE [Suspect]
     Active Substance: ROMIPLOSTIM
     Dosage: UNK
     Route: 040
     Dates: start: 202305, end: 20230531

REACTIONS (4)
  - Renal impairment [Recovered/Resolved with Sequelae]
  - Atypical haemolytic uraemic syndrome [Recovered/Resolved with Sequelae]
  - Thrombotic microangiopathy [Recovered/Resolved with Sequelae]
  - Burning sensation [Recovered/Resolved]

NARRATIVE: CASE EVENT DATE: 20221201
